FAERS Safety Report 6687096-1 (Version None)
Quarter: 2010Q2

REPORT INFORMATION
  Report Type: 
  Country: None (occurrence: None)
  Receive Date: 20100419
  Receipt Date: 20090504
  Transmission Date: 20101027
  Serious: Yes (Other)
  Sender: FDA-Public Use
  Company Number: PHHY2009SE16748

PATIENT
  Age: 17 Year
  Sex: Male

DRUGS (1)
  1. ELIDEL [Suspect]
     Indication: DERMATITIS ATOPIC
     Dosage: UNK
     Dates: start: 20090101

REACTIONS (3)
  - EYE SWELLING [None]
  - HERPES SIMPLEX [None]
  - OCULAR HYPERAEMIA [None]
